FAERS Safety Report 10981198 (Version 2)
Quarter: 2015Q2

REPORT INFORMATION
  Report Type: Spontaneous
  Country: US (occurrence: US)
  Receive Date: 20150402
  Receipt Date: 20150525
  Transmission Date: 20150821
  Serious: No
  Sender: FDA-Public Use
  Company Number: US-JNJFOC-20140606846

PATIENT
  Age: 53 Year
  Sex: Female
  Weight: 63.5 kg

DRUGS (4)
  1. IMODIUM MULTI-SYMPTOM RELIEF [Suspect]
     Active Substance: DIMETHICONE\LOPERAMIDE HYDROCHLORIDE
     Indication: DIARRHOEA
     Route: 048
     Dates: start: 20140609
  2. IMODIUM MULTI-SYMPTOM RELIEF [Suspect]
     Active Substance: DIMETHICONE\LOPERAMIDE HYDROCHLORIDE
     Route: 048
  3. BENICAR [Concomitant]
     Active Substance: OLMESARTAN MEDOXOMIL
     Indication: BLOOD CHOLESTEROL INCREASED
     Route: 065
  4. ANTITHYROID DRUG, UNSPECIFIED [Concomitant]
     Indication: THYROID DISORDER
     Route: 065

REACTIONS (2)
  - Dysgeusia [Recovering/Resolving]
  - Product lot number issue [Unknown]

NARRATIVE: CASE EVENT DATE: 201406
